FAERS Safety Report 15895906 (Version 1)
Quarter: 2019Q1

REPORT INFORMATION
  Report Type: Spontaneous
  Country: US (occurrence: US)
  Receive Date: 20190131
  Receipt Date: 20190131
  Transmission Date: 20190417
  Serious: Yes (Other)
  Sender: FDA-Public Use
  Company Number: US-NEOS THERAPEUTICS, LP-2019NEO00003

PATIENT
  Sex: Male
  Weight: 27.21 kg

DRUGS (12)
  1. COTEMPLA XR-ODT [Suspect]
     Active Substance: METHYLPHENIDATE
     Indication: AUTISM SPECTRUM DISORDER
  2. COTEMPLA XR-ODT [Suspect]
     Active Substance: METHYLPHENIDATE
     Indication: SENSORY DISTURBANCE
  3. DEPAKOTE [Concomitant]
     Active Substance: DIVALPROEX SODIUM
     Dosage: 125 MG, 2X/DAY
  4. COTEMPLA XR-ODT [Suspect]
     Active Substance: METHYLPHENIDATE
     Indication: ATTENTION DEFICIT/HYPERACTIVITY DISORDER
     Dosage: 34.6 MG, 1X/DAY; AS TWO 17.3 TABLETS/DAY
     Route: 048
     Dates: start: 20190103
  5. COTEMPLA XR-ODT [Suspect]
     Active Substance: METHYLPHENIDATE
     Indication: SENSORY DISTURBANCE
  6. CLONIDINE. [Concomitant]
     Active Substance: CLONIDINE
     Dosage: 0.1 MG, 2X/DAY
  7. UNSPECIFIED SLEEP AID [Concomitant]
  8. COTEMPLA XR-ODT [Suspect]
     Active Substance: METHYLPHENIDATE
     Indication: AUTISM SPECTRUM DISORDER
  9. ZYPREXA [Concomitant]
     Active Substance: OLANZAPINE
     Dosage: 5 MG, AS NEEDED
  10. COTEMPLA XR-ODT [Suspect]
     Active Substance: METHYLPHENIDATE
     Indication: AUTISM SPECTRUM DISORDER
  11. COTEMPLA XR-ODT [Suspect]
     Active Substance: METHYLPHENIDATE
     Indication: ATTENTION DEFICIT/HYPERACTIVITY DISORDER
     Dosage: 25.9 MG, 1X/DAY
     Route: 048
     Dates: start: 201810, end: 2018
  12. COTEMPLA XR-ODT [Suspect]
     Active Substance: METHYLPHENIDATE
     Indication: AUTISM SPECTRUM DISORDER

REACTIONS (8)
  - Therapeutic product ineffective [Recovered/Resolved]
  - Insomnia [Recovering/Resolving]
  - Abnormal loss of weight [Not Recovered/Not Resolved]
  - Pallor [Recovering/Resolving]
  - Product administration error [Unknown]
  - Aggression [Recovering/Resolving]
  - Decreased appetite [Not Recovered/Not Resolved]
  - Dark circles under eyes [Unknown]

NARRATIVE: CASE EVENT DATE: 2018
